FAERS Safety Report 6886228-X (Version None)
Quarter: 2010Q3

REPORT INFORMATION
  Report Type: 
  Country: None (occurrence: None)
  Receive Date: 20100729
  Receipt Date: 20080618
  Transmission Date: 20110219
  Serious: Yes (Other)
  Sender: FDA-Public Use
  Company Number: US-PFIZER INC-2008032767

PATIENT
  Sex: Female
  Weight: 85 kg

DRUGS (15)
  1. CELEBREX [Suspect]
     Indication: ARTHRITIS
     Dates: end: 20080101
  2. CHANTIX [Suspect]
     Dates: start: 20080407
  3. SIMVASTATIN [Suspect]
     Dates: start: 20080101
  4. QUINAPRIL [Concomitant]
  5. CETIRIZINE HYDROCHLORIDE [Concomitant]
  6. NEFAZODONE HCL [Concomitant]
  7. GABAPENTIN [Concomitant]
  8. TIZANIDINE HCL [Concomitant]
  9. TRAZODONE [Concomitant]
  10. VIVELLE [Concomitant]
  11. CITRACAL [Concomitant]
  12. VITAMINS [Concomitant]
  13. FLOVENT [Concomitant]
  14. ALBUTEROL [Concomitant]
     Route: 055
  15. NASONEX [Concomitant]

REACTIONS (5)
  - ABNORMAL DREAMS [None]
  - CORONARY ARTERY OCCLUSION [None]
  - INSOMNIA [None]
  - IRRITABILITY [None]
  - RESTLESSNESS [None]
